FAERS Safety Report 4392208-9 (Version None)
Quarter: 2004Q3

REPORT INFORMATION
  Report Type: 
  Country: None (occurrence: None)
  Receive Date: 20040702
  Receipt Date: 20040205
  Transmission Date: 20050211
  Serious: Yes (Other)
  Sender: FDA-Public Use
  Company Number: 2004UW02307

PATIENT
  Age: 52 Year
  Sex: Female

DRUGS (1)
  1. CRESTOR [Suspect]

REACTIONS (6)
  - DRY SKIN [None]
  - ERYTHEMA [None]
  - HAND DERMATITIS [None]
  - RASH [None]
  - RASH PRURITIC [None]
  - RASH SCALY [None]
